FAERS Safety Report 23957496 (Version 2)
Quarter: 2024Q4

REPORT INFORMATION
  Report Type: Spontaneous
  Country: FR (occurrence: FR)
  Receive Date: 20240610
  Receipt Date: 20241022
  Transmission Date: 20250115
  Serious: Yes (Hospitalization, Other)
  Sender: ELI LILLY AND COMPANY
  Company Number: FR-ELI_LILLY_AND_COMPANY-FR202405018980

PATIENT
  Age: 84 Year
  Sex: Female

DRUGS (6)
  1. CYMBALTA [Suspect]
     Active Substance: DULOXETINE HYDROCHLORIDE
     Indication: Pain
     Dosage: 1 DOSAGE FORM, UNKNOWN
     Route: 065
     Dates: start: 2023
  2. CYMBALTA [Suspect]
     Active Substance: DULOXETINE HYDROCHLORIDE
     Indication: Neuralgia
     Dosage: 2 DOSAGE FORM, UNKNOWN
     Route: 065
     Dates: start: 2023
  3. CYMBALTA [Suspect]
     Active Substance: DULOXETINE HYDROCHLORIDE
     Indication: Polyneuropathy
     Dosage: 30 MG, BID
     Route: 065
     Dates: start: 2023
  4. CYMBALTA [Suspect]
     Active Substance: DULOXETINE HYDROCHLORIDE
     Dosage: 60 MG, UNKNOWN
     Route: 065
     Dates: start: 2023
  5. CYMBALTA [Suspect]
     Active Substance: DULOXETINE HYDROCHLORIDE
     Dosage: 30 MG, BID (MORNING AND EVENING)
     Route: 065
     Dates: start: 2023
  6. INSULIN NOS [Concomitant]
     Active Substance: INSULIN NOS
     Indication: Diabetes mellitus
     Dosage: UNK UNK, UNKNOWN
     Route: 065

REACTIONS (18)
  - Diabetes mellitus [Not Recovered/Not Resolved]
  - Shoulder fracture [Unknown]
  - Necrosis [Unknown]
  - Hand fracture [Unknown]
  - Rib fracture [Unknown]
  - Ear haemorrhage [Unknown]
  - Fall [Not Recovered/Not Resolved]
  - Ear pain [Unknown]
  - Vein disorder [Unknown]
  - Drug intolerance [Unknown]
  - Speech disorder [Unknown]
  - Off label use [Unknown]
  - Nightmare [Not Recovered/Not Resolved]
  - Malaise [Unknown]
  - Oropharyngeal pain [Unknown]
  - Anxiety [Unknown]
  - Middle insomnia [Unknown]
  - Hyponatraemia [Unknown]

NARRATIVE: CASE EVENT DATE: 20230101
